FAERS Safety Report 4819467-X (Version None)
Quarter: 2005Q4

REPORT INFORMATION
  Report Type: 
  Country: None (occurrence: None)
  Receive Date: 20051103
  Receipt Date: 20051025
  Transmission Date: 20060501
  Serious: Yes (Other)
  Sender: FDA-Public Use
  Company Number: PHMT2005CA00450

PATIENT
  Sex: Female

DRUGS (2)
  1. PAXIL [Concomitant]
     Dosage: 1 PILL PER DAY
  2. SANOREX [Suspect]
     Dosage: 2 MG, QD

REACTIONS (3)
  - CONVULSION [None]
  - GASTROINTESTINAL DISORDER [None]
  - INTESTINAL FUNCTIONAL DISORDER [None]
